FAERS Safety Report 5216325-6 (Version None)
Quarter: 2007Q1

REPORT INFORMATION
  Report Type: 
  Country: None (occurrence: None)
  Receive Date: 20070118
  Receipt Date: 20070102
  Transmission Date: 20070707
  Serious: Yes (Hospitalization)
  Sender: FDA-Public Use
  Company Number: 234462

PATIENT
  Age: 77 Year
  Sex: Female

DRUGS (15)
  1. LUCENTIS [Suspect]
     Indication: MACULAR DEGENERATION
     Dosage: 0.03 MG, INTRAVITERAL
     Dates: start: 20061115
  2. TOFRANIL [Concomitant]
  3. NEXIUM (ESOMEPRASOLE MAGNESIUM) [Concomitant]
  4. PANAMAX (ACETAMINOPHEN) [Concomitant]
  5. VENTOILIN INHALER (ALBUTEROL/ALBUTEROL SULFATE) [Concomitant]
  6. SUCRALFATE [Concomitant]
  7. TRIMETHOPRIM [Concomitant]
  8. HEXAMINE HIPPURATE (METHENAMINE HIPPURATE) [Concomitant]
  9. PRAZOSIN (PRAZOSIN HYDROCHLORIDE) [Concomitant]
  10. SPIRIVA [Concomitant]
  11. DOMPERIDONE (DOMPERIDONE) [Concomitant]
  12. AMLODIPINE BESYLATE [Concomitant]
  13. LISINOPRIL [Concomitant]
  14. COLOXYL WITH SENNA (DOCUSATE SODIUM, SENNOSIDES) [Concomitant]
  15. ASPIRIN [Concomitant]

REACTIONS (5)
  - CHEST PAIN [None]
  - ELECTROCARDIOGRAM ST SEGMENT DEPRESSION [None]
  - ERUCTATION [None]
  - HYPERHIDROSIS [None]
  - HYPERTENSION [None]
